FAERS Safety Report 10694442 (Version 2)
Quarter: 2015Q1

REPORT INFORMATION
  Report Type: Report from Study
  Country: US (occurrence: US)
  Receive Date: 20150107
  Receipt Date: 20150123
  Transmission Date: 20150721
  Serious: Yes (Hospitalization, Other)
  Sender: FDA-Public Use
  Company Number: US-ROCHE-1517320

PATIENT
  Age: 58 Year
  Sex: Male
  Weight: 60 kg

DRUGS (3)
  1. BEVACIZUMAB [Suspect]
     Active Substance: BEVACIZUMAB
     Indication: SQUAMOUS CELL CARCINOMA OF HEAD AND NECK
     Dosage: OVER 30-90 MINS, LAST DOSE PRIOR TO SAE ON 07/NOV/2014
     Route: 042
     Dates: start: 20141013
  2. CISPLATIN. [Suspect]
     Active Substance: CISPLATIN
     Indication: SQUAMOUS CELL CARCINOMA OF HEAD AND NECK
     Dosage: OVER 1-2 HOURS, LAST DOSE PRIOR TO SAE ON 03/NOV/2014
     Route: 042
     Dates: start: 20141013
  3. 5-FLUOROURACIL [Suspect]
     Active Substance: FLUOROURACIL
     Indication: SQUAMOUS CELL CARCINOMA OF HEAD AND NECK
     Dosage: CIV ONCE IN FOUR DAYS
     Route: 042
     Dates: start: 20141013

REACTIONS (6)
  - Hyponatraemia [Not Recovered/Not Resolved]
  - White blood cell count decreased [Recovering/Resolving]
  - Seizure [Not Recovered/Not Resolved]
  - Neutrophil count decreased [Recovering/Resolving]
  - Hypokalaemia [Not Recovered/Not Resolved]
  - Acute kidney injury [Not Recovered/Not Resolved]

NARRATIVE: CASE EVENT DATE: 20141107
